FAERS Safety Report 13351325 (Version 1)
Quarter: 2017Q1

REPORT INFORMATION
  Report Type: Report from Study
  Country: CA (occurrence: CA)
  Receive Date: 20170320
  Receipt Date: 20170320
  Transmission Date: 20170429
  Serious: Yes (Other)
  Sender: FDA-Public Use
  Company Number: CA-PFIZER INC-2017116708

PATIENT

DRUGS (2)
  1. ASPIRIN (E.C.) [Suspect]
     Active Substance: ASPIRIN
     Dosage: 3900 MG, DAILY
     Route: 048
     Dates: start: 1973
  2. IBUPROFEN. [Suspect]
     Active Substance: IBUPROFEN
     Dosage: 800 MG, DAILY
     Route: 048
     Dates: start: 1973

REACTIONS (1)
  - Colitis microscopic [Unknown]

NARRATIVE: CASE EVENT DATE: 1984
